FAERS Safety Report 7913260-7 (Version None)
Quarter: 2011Q4

REPORT INFORMATION
  Report Type: 
  Country: None (occurrence: None)
  Receive Date: 20111114
  Receipt Date: 20111103
  Transmission Date: 20120403
  Serious: Yes (Other)
  Sender: FDA-Public Use
  Company Number: FR-ASTRAZENECA-2011SE66758

PATIENT
  Sex: Female

DRUGS (3)
  1. ATARAX [Concomitant]
  2. CALCIT D3 [Concomitant]
  3. IRESSA [Suspect]
     Indication: BRONCHIAL CARCINOMA
     Route: 048
     Dates: start: 20100715, end: 20111101

REACTIONS (1)
  - DERMATOSIS [None]
